FAERS Safety Report 20609385 (Version 2)
Quarter: 2022Q2

REPORT INFORMATION
  Report Type: Report from Study
  Country: US (occurrence: US)
  Receive Date: 20220317
  Receipt Date: 20220404
  Transmission Date: 20220721
  Serious: Yes (Other)
  Sender: FDA-Public Use
  Company Number: US-JNJFOC-20220325963

PATIENT
  Age: 75 Year
  Sex: Female
  Weight: 104.5 kg

DRUGS (4)
  1. EPOPROSTENOL SODIUM [Suspect]
     Active Substance: EPOPROSTENOL SODIUM
     Indication: Pulmonary arterial hypertension
     Route: 042
  2. WARFARIN [Concomitant]
     Active Substance: WARFARIN
  3. LETAIRIS [Concomitant]
     Active Substance: AMBRISENTAN
  4. TADALAFIL [Concomitant]
     Active Substance: TADALAFIL

REACTIONS (2)
  - Vascular device occlusion [Unknown]
  - Underdose [Unknown]

NARRATIVE: CASE EVENT DATE: 20220308
